FAERS Safety Report 8867571 (Version 1)
Quarter: 2012Q4

REPORT INFORMATION
  Report Type: 
  Country: US (occurrence: US)
  Receive Date: 20121025
  Receipt Date: 20121025
  Transmission Date: 20130627
  Serious: No
  Sender: FDA-Public Use
  Company Number: US-AMGEN-USASP2012017413

PATIENT
  Age: 61 Year
  Sex: Female
  Weight: 58.96 kg

DRUGS (4)
  1. ENBREL [Suspect]
     Indication: PRODUCT USED FOR UNKNOWN INDICATION
     Dosage: 50 mg, qwk
     Route: 058
  2. METHOTREXATE [Concomitant]
     Dosage: 2.5 mg, UNK
  3. FOLIC ACID [Concomitant]
     Dosage: UNK
  4. VITAMIN C                          /00008001/ [Concomitant]
     Dosage: 500 mg, UNK

REACTIONS (4)
  - Musculoskeletal stiffness [Unknown]
  - Sinusitis [Unknown]
  - Injection site bruising [Unknown]
  - Injection site pain [Unknown]
